FAERS Safety Report 4833274-3 (Version None)
Quarter: 2005Q4

REPORT INFORMATION
  Report Type: 
  Country: None (occurrence: None)
  Receive Date: 20051121
  Receipt Date: 20051115
  Transmission Date: 20060501
  Serious: Yes (Hospitalization, Other)
  Sender: FDA-Public Use
  Company Number: ZA-BRISTOL-MYERS SQUIBB COMPANY-13180815

PATIENT
  Age: 49 Year
  Sex: Male

DRUGS (6)
  1. CISPLATIN [Suspect]
     Indication: GASTRIC CANCER
     Dosage: CYCLES 1-3: STARTED 04-AUG-2005
     Route: 041
     Dates: start: 20051028, end: 20051028
  2. FLUOROURACIL [Suspect]
     Indication: GASTRIC CANCER
     Dosage: DOSING; 5 DAYS EVERY 28 DAYS CYCLE 1-3 STARTED 04-AUG-2005
     Route: 041
     Dates: start: 20051102, end: 20051102
  3. NEXIUM [Concomitant]
     Indication: REFLUX GASTRITIS
     Route: 048
     Dates: start: 20050507
  4. ALZAM [Concomitant]
     Indication: ANXIETY
     Route: 048
     Dates: start: 20050808
  5. LENTOGESIC [Concomitant]
     Indication: PAIN
     Dosage: DOSAGE FORM: CAPSULE (4 CAP BD, PRN)
     Route: 048
     Dates: start: 20050801
  6. KYTRIL [Concomitant]
     Indication: NAUSEA
     Dosage: DOSAGE FORM: TABLET (1/DAY PRN)
     Route: 048
     Dates: start: 20050804

REACTIONS (5)
  - CATHETER RELATED COMPLICATION [None]
  - DEHYDRATION [None]
  - DIARRHOEA [None]
  - HYPOTENSION [None]
  - NAUSEA [None]
